FAERS Safety Report 4551993-3 (Version None)
Quarter: 2004Q4

REPORT INFORMATION
  Report Type: 
  Country: None (occurrence: None)
  Receive Date: 20041217
  Receipt Date: 20040817
  Transmission Date: 20050328
  Serious: No
  Sender: FDA-Public Use
  Company Number: 2004-P-06936BP

PATIENT
  Age: 47 Year
  Sex: Female

DRUGS (6)
  1. SPIRIVA [Suspect]
     Indication: CHRONIC OBSTRUCTIVE AIRWAYS DISEASE
     Dosage: 18 MCG (18 MCG), IH
     Route: 055
     Dates: start: 20040601
  2. SPIRIVA [Suspect]
  3. LIPITOR [Suspect]
     Indication: HYPERLIPIDAEMIA
  4. TOPROL-XL [Suspect]
     Indication: HEART RATE INCREASED
  5. VITAMINS (VITAMINS) [Concomitant]
  6. VITAMIN E [Concomitant]

REACTIONS (2)
  - DRY MOUTH [None]
  - WEIGHT INCREASED [None]
